FAERS Safety Report 7826774-5 (Version None)
Quarter: 2011Q4

REPORT INFORMATION
  Report Type: 
  Country: None (occurrence: None)
  Receive Date: 20111020
  Receipt Date: 20111006
  Transmission Date: 20120403
  Serious: Yes (Other)
  Sender: FDA-Public Use
  Company Number: US-BAYER-201039478NA

PATIENT
  Age: 21 Year
  Sex: Female

DRUGS (4)
  1. OXYCODONE HCL [Concomitant]
     Dosage: 5 MG
     Route: 048
     Dates: start: 20090708
  2. YASMIN [Suspect]
     Indication: CONTRACEPTION
     Dosage: UNK
     Route: 048
     Dates: start: 20050101, end: 20090101
  3. APAP TAB [Concomitant]
     Dosage: 325 MG
     Route: 048
     Dates: start: 20090708
  4. YAZ [Suspect]
     Indication: CONTRACEPTION
     Dosage: UNK
     Route: 048
     Dates: start: 20050101, end: 20090101

REACTIONS (2)
  - GALLBLADDER DISORDER [None]
  - CHOLECYSTITIS [None]
